FAERS Safety Report 11418741 (Version 9)
Quarter: 2016Q1

REPORT INFORMATION
  Report Type: Report from Study
  Country: DE (occurrence: DE)
  Receive Date: 20150826
  Receipt Date: 20160314
  Transmission Date: 20160525
  Serious: Yes (Life-Threatening, Hospitalization)
  Sender: FDA-Public Use
  Company Number: DE-ROCHE-1623319

PATIENT
  Age: 59 Year
  Sex: Male
  Weight: 97 kg

DRUGS (13)
  1. BEVACIZUMAB [Suspect]
     Active Substance: BEVACIZUMAB
     Indication: COLORECTAL CANCER METASTATIC
     Dosage: DAY 1 OF EVERY WEEK 2 CYCLE, DATE OF MOST RECENT DOSE PRIOR TO SAE: 11/AUG/2015
     Route: 042
     Dates: start: 20150714
  2. FLUOROURACIL. [Suspect]
     Active Substance: FLUOROURACIL
     Indication: COLORECTAL CANCER METASTATIC
     Dosage: DATE OF MOST RECENT DOSE PRIOR TO SAE: 11/AUG/2015?ADMINISTERED PER INVESTIGATOR DISCRETION IN ACCOR
     Route: 042
     Dates: start: 20150714
  3. ALLOPURINOL. [Concomitant]
     Active Substance: ALLOPURINOL
  4. OXALIPLATIN. [Suspect]
     Active Substance: OXALIPLATIN
     Indication: COLORECTAL CANCER METASTATIC
     Dosage: DATE OF MOST RECENT DOSE PRIOR TO SAE: 11/AUG/2015?ADMINISTERED PER INVESTIGATOR DISCRETION IN ACCOR
     Route: 042
     Dates: start: 20150714
  5. KOMBIGLYZE XR [Concomitant]
     Active Substance: METFORMIN HYDROCHLORIDE\SAXAGLIPTIN HYDROCHLORIDE
     Route: 065
  6. MARCUMAR [Concomitant]
     Active Substance: PHENPROCOUMON
  7. RAMIPRIL. [Concomitant]
     Active Substance: RAMIPRIL
     Route: 065
  8. ONDANSETRON [Concomitant]
     Active Substance: ONDANSETRON
     Route: 065
     Dates: start: 20150715
  9. DEXAMETHASON [Concomitant]
     Active Substance: DEXAMETHASONE
     Route: 065
     Dates: start: 20150714
  10. KEVATRIL [Concomitant]
     Active Substance: GRANISETRON HYDROCHLORIDE
     Route: 065
     Dates: start: 20150714
  11. FOLINIC ACID [Suspect]
     Active Substance: LEUCOVORIN
     Indication: COLORECTAL CANCER METASTATIC
     Dosage: DATE OF MOST RECENT DOSE PRIOR TO SAE: 11/AUG/2015?ADMINISTERED PER INVESTIGATOR DISCRETION IN ACCOR
     Route: 042
     Dates: start: 20150714
  12. INSULIN [Concomitant]
     Active Substance: INSULIN NOS
  13. MCP [Concomitant]
     Active Substance: METOCLOPRAMIDE HYDROCHLORIDE
     Route: 065
     Dates: start: 20150715

REACTIONS (1)
  - Enterobiasis [Recovered/Resolved]

NARRATIVE: CASE EVENT DATE: 20150813
